FAERS Safety Report 19231210 (Version 2)
Quarter: 2021Q2

REPORT INFORMATION
  Report Type: Report from Study
  Country: US (occurrence: US)
  Receive Date: 20210507
  Receipt Date: 20210617
  Transmission Date: 20210717
  Serious: Yes (Congenital Anomaly)
  Sender: FDA-Public Use
  Company Number: US-GILEAD-2021-0528777

PATIENT
  Age: 0 Year
  Sex: Male

DRUGS (4)
  1. TRIMETHOPRIM SULFAMETHOXAZOLE [Suspect]
     Active Substance: SULFAMETHOXAZOLE\TRIMETHOPRIM
     Indication: PRODUCT USED FOR UNKNOWN INDICATION
     Dosage: UNK
     Route: 064
     Dates: end: 20210314
  2. EMTRICITABINE;TENOFOVIR DISOPROXIL FUMARATE [Suspect]
     Active Substance: EMTRICITABINE\TENOFOVIR DISOPROXIL FUMARATE
     Indication: HIV INFECTION
     Dosage: 1 DOSAGE FORM, QD
     Route: 064
     Dates: start: 20200911, end: 20210314
  3. FOLATE [Suspect]
     Active Substance: FOLATE SODIUM
     Indication: PRODUCT USED FOR UNKNOWN INDICATION
     Dosage: UNK
     Route: 064
     Dates: end: 20210314
  4. TIVICAY [Suspect]
     Active Substance: DOLUTEGRAVIR SODIUM
     Indication: HIV INFECTION
     Dosage: 1 DOSAGE FORM, QD
     Route: 064
     Dates: start: 20200911, end: 20210314

REACTIONS (3)
  - Congenital monorchidism [Unknown]
  - Foetal exposure during pregnancy [Recovered/Resolved]
  - Premature baby [Recovered/Resolved]

NARRATIVE: CASE EVENT DATE: 20200911
